FAERS Safety Report 5963618-0 (Version None)
Quarter: 2008Q4

REPORT INFORMATION
  Report Type: 
  Country: None (occurrence: None)
  Receive Date: 20081124
  Receipt Date: 20081111
  Transmission Date: 20090506
  Serious: Yes (Death)
  Sender: FDA-Public Use
  Company Number: DE-ROCHE-596662

PATIENT
  Sex: Female
  Weight: 75 kg

DRUGS (4)
  1. PEG-INTERFERON ALFA 2A (RO 25-8310) [Suspect]
     Route: 058
     Dates: start: 20080624, end: 20081021
  2. RIBAVIRIN [Suspect]
     Route: 048
     Dates: start: 20080624, end: 20081021
  3. OPIATE NOS [Suspect]
     Dosage: DRUG NAME REPORTED AS: ^OPIATE^
     Route: 065
     Dates: start: 20081028
  4. CITALOPRAM HYDROBROMIDE [Concomitant]
     Indication: DEPRESSION
     Route: 048
     Dates: start: 20080708, end: 20081021

REACTIONS (1)
  - OVERDOSE [None]
